FAERS Safety Report 5675035-1 (Version None)
Quarter: 2008Q1

REPORT INFORMATION
  Report Type: 
  Country: None (occurrence: None)
  Receive Date: 20080320
  Receipt Date: 20080317
  Transmission Date: 20080703
  Serious: Yes (Death, Disabling)
  Sender: FDA-Public Use
  Company Number: PHHY2008AU02226

PATIENT
  Sex: Female

DRUGS (9)
  1. TASIGNA [Suspect]
     Indication: CHRONIC MYELOID LEUKAEMIA
     Dosage: 400 MG, BID
     Route: 048
     Dates: start: 20080201
  2. COVERSYL /BEL/ [Concomitant]
     Dosage: 2.5 MG, QD
  3. LASIX [Concomitant]
     Dosage: 40 MG, BID
  4. LEVOTHYROXINE SODIUM [Concomitant]
     Dosage: 150 UNK, QD
  5. PANTOPRAZOLE SODIUM [Concomitant]
     Dosage: 40 MG, QD
  6. PREDNISOLONE [Concomitant]
     Dosage: 5 MG, QD
  7. SLOW-K [Concomitant]
  8. SINEQUAN [Concomitant]
     Dosage: 10 MG, QD
  9. NILSTAT [Concomitant]
     Dosage: 1 ML, QID

REACTIONS (2)
  - DEATH [None]
  - DYSPHAGIA [None]
